FAERS Safety Report 24814337 (Version 1)
Quarter: 2025Q1

REPORT INFORMATION
  Report Type: Spontaneous
  Country: FR (occurrence: FR)
  Receive Date: 20250107
  Receipt Date: 20250107
  Transmission Date: 20250409
  Serious: Yes (Other)
  Sender: AUROBINDO
  Company Number: FR-AFSSAPS-AVMA2024000659

PATIENT
  Age: 28 Year
  Sex: Female

DRUGS (5)
  1. LAMOTRIGINE [Suspect]
     Active Substance: LAMOTRIGINE
     Indication: Product used for unknown indication
     Route: 065
  2. DIAZEPAM [Suspect]
     Active Substance: DIAZEPAM
     Indication: Product used for unknown indication
     Route: 065
  3. CYAMEMAZINE [Suspect]
     Active Substance: CYAMEMAZINE
     Indication: Product used for unknown indication
     Route: 065
  4. PAROXETINE [Suspect]
     Active Substance: PAROXETINE
     Indication: Product used for unknown indication
     Route: 065
  5. COCAINE [Suspect]
     Active Substance: COCAINE
     Indication: Product used for unknown indication
     Route: 065

REACTIONS (3)
  - Altered state of consciousness [Recovered/Resolved]
  - Substance use disorder [Unknown]
  - Drug use disorder [Unknown]

NARRATIVE: CASE EVENT DATE: 20240528
